FAERS Safety Report 16751985 (Version 25)
Quarter: 2023Q4

REPORT INFORMATION
  Report Type: Report from Study
  Country: DE (occurrence: DE)
  Receive Date: 20190828
  Receipt Date: 20231106
  Transmission Date: 20240110
  Serious: Yes (Hospitalization, Other)
  Sender: FDA-Public Use
  Company Number: PHHY2019DE073814

PATIENT
  Age: 57 Year
  Sex: Female
  Weight: 80 kg

DRUGS (5)
  1. COSENTYX [Suspect]
     Active Substance: SECUKINUMAB
     Indication: Psoriatic arthropathy
     Dosage: 300 MG, QMO
     Route: 058
     Dates: start: 20161117, end: 20170111
  2. COSENTYX [Suspect]
     Active Substance: SECUKINUMAB
     Dosage: 300 MG, QMO
     Route: 058
     Dates: start: 20170112, end: 20211027
  3. COSENTYX [Suspect]
     Active Substance: SECUKINUMAB
     Dosage: 300 MG, QMO
     Route: 058
     Dates: start: 20211124, end: 20220710
  4. COSENTYX [Suspect]
     Active Substance: SECUKINUMAB
     Dosage: 300 MG, QMO
     Route: 058
     Dates: start: 20220724
  5. METHOTREXATE [Concomitant]
     Active Substance: METHOTREXATE
     Indication: Psoriatic arthropathy
     Dosage: 22.5 MG, UNKNOWN
     Route: 065
     Dates: start: 20070316

REACTIONS (27)
  - Angina pectoris [Recovered/Resolved]
  - Arrhythmia [Recovered/Resolved]
  - Uterine polyp [Recovered/Resolved]
  - Coronary artery disease [Recovered/Resolved]
  - Uterine leiomyoma [Recovered/Resolved]
  - Basal cell carcinoma [Recovered/Resolved]
  - Klebsiella infection [Recovered/Resolved]
  - Microvascular coronary artery disease [Recovered/Resolved]
  - Cataract [Recovered/Resolved]
  - Cataract [Recovered/Resolved]
  - Cystitis [Recovered/Resolved]
  - Cystitis [Recovered/Resolved]
  - COVID-19 [Recovered/Resolved]
  - Pyrexia [Recovered/Resolved]
  - Cough [Recovered/Resolved]
  - Oropharyngeal pain [Recovered/Resolved]
  - Fatigue [Recovered/Resolved]
  - Myalgia [Recovered/Resolved]
  - Dyspnoea [Recovered/Resolved]
  - Anosmia [Recovered/Resolved]
  - Ageusia [Recovered/Resolved]
  - Impaired healing [Recovered/Resolved]
  - Nasopharyngitis [Recovered/Resolved]
  - Sinusitis [Recovered/Resolved]
  - Actinic keratosis [Recovered/Resolved]
  - Wrist fracture [Recovered/Resolved]
  - Bronchitis [Recovered/Resolved]

NARRATIVE: CASE EVENT DATE: 20181010
